FAERS Safety Report 7312844-7 (Version None)
Quarter: 2011Q1

REPORT INFORMATION
  Report Type: 
  Country: None (occurrence: None)
  Receive Date: 20110224
  Receipt Date: 20110214
  Transmission Date: 20110831
  Serious: Yes (Hospitalization)
  Sender: FDA-Public Use
  Company Number: AU-WATSON-2011-02034

PATIENT
  Age: 61 Year
  Sex: Female

DRUGS (1)
  1. BACLOFEN [Suspect]
     Indication: DRUG ABUSE
     Dosage: 75 MG, DAILY
     Route: 065

REACTIONS (3)
  - DRUG ABUSE [None]
  - WITHDRAWAL SYNDROME [None]
  - DELIRIUM [None]
